FAERS Safety Report 25506755 (Version 1)
Quarter: 2025Q3

REPORT INFORMATION
  Report Type: Spontaneous
  Country: CN (occurrence: CN)
  Receive Date: 20250702
  Receipt Date: 20250702
  Transmission Date: 20251020
  Serious: Yes (Hospitalization)
  Sender: Hugel Aesthetics
  Company Number: CN-Hugel Aesthetics-2179822

PATIENT
  Age: 23 Year
  Sex: Female

DRUGS (1)
  1. LETYBO [Suspect]
     Active Substance: LETIBOTULINUMTOXINA-WLBG
     Dates: start: 20250601

REACTIONS (12)
  - Eyelid ptosis [Recovering/Resolving]
  - Dehydration [Recovering/Resolving]
  - Muscular weakness [Recovering/Resolving]
  - Botulism [Recovering/Resolving]
  - Vomiting [Recovering/Resolving]
  - Chest discomfort [Recovering/Resolving]
  - Hiccups [Recovering/Resolving]
  - Asthenia [Recovering/Resolving]
  - Dyspnoea [Recovering/Resolving]
  - Vision blurred [Recovering/Resolving]
  - Dizziness [Recovering/Resolving]
  - Dysphagia [Recovering/Resolving]

NARRATIVE: CASE EVENT DATE: 20250606
